FAERS Safety Report 23447303 (Version 3)
Quarter: 2024Q1

REPORT INFORMATION
  Report Type: Spontaneous
  Country: CH (occurrence: CH)
  Receive Date: 20240126
  Receipt Date: 20240131
  Transmission Date: 20240409
  Serious: Yes (Death, Other)
  Sender: FDA-Public Use
  Company Number: CH-009507513-2401CHE014699

PATIENT
  Age: 64 Year
  Sex: Male

DRUGS (1)
  1. BCG LIVE [Suspect]
     Active Substance: BACILLUS CALMETTE-GUERIN SUBSTRAIN TICE LIVE ANTIGEN
     Indication: Bladder cancer
     Dosage: FOR 6 MONTHS
     Route: 043
     Dates: start: 2011

REACTIONS (6)
  - Metastases to liver [Fatal]
  - Bladder cancer recurrent [Recovered/Resolved]
  - Metastases to lymph nodes [Recovered/Resolved]
  - Metastases to lung [Recovered/Resolved]
  - Bladder cancer recurrent [Unknown]
  - Lung carcinoma cell type unspecified recurrent [Unknown]

NARRATIVE: CASE EVENT DATE: 20131201
